FAERS Safety Report 9500200 (Version 1)
Quarter: 2013Q3

REPORT INFORMATION
  Report Type: Spontaneous
  Country: AR (occurrence: AR)
  Receive Date: 20130905
  Receipt Date: 20130905
  Transmission Date: 20140515
  Serious: Yes (Other)
  Sender: FDA-Public Use
  Company Number: AR-AMGEN-ARGSP2013062361

PATIENT
  Age: 76 Year
  Sex: Female

DRUGS (1)
  1. ENBREL [Suspect]
     Indication: RHEUMATOID ARTHRITIS
     Dosage: 25 MG, 2X/WEEK
     Route: 065
     Dates: start: 20041115

REACTIONS (4)
  - Gallbladder disorder [Unknown]
  - Epigastric discomfort [Not Recovered/Not Resolved]
  - Liver disorder [Not Recovered/Not Resolved]
  - Movement disorder [Not Recovered/Not Resolved]
